FAERS Safety Report 16001702 (Version 1)
Quarter: 2019Q1

REPORT INFORMATION
  Report Type: Spontaneous
  Country: US (occurrence: US)
  Receive Date: 20190225
  Receipt Date: 20190225
  Transmission Date: 20190418
  Serious: No
  Sender: FDA-Public Use
  Company Number: US-ALLERGAN-1825272US

PATIENT
  Sex: Female
  Weight: 66.21 kg

DRUGS (6)
  1. SYNTHROID [Concomitant]
     Active Substance: LEVOTHYROXINE SODIUM
     Indication: THYROID DISORDER
     Dosage: 0.25 MG, UNK
     Route: 065
  2. NORCO [Suspect]
     Active Substance: ACETAMINOPHEN\HYDROCODONE BITARTRATE
     Indication: MIGRAINE
     Dosage: UNK UNK, PRN
     Route: 048
  3. VIVELLE-DOT [Concomitant]
     Active Substance: ESTRADIOL
     Indication: HORMONE REPLACEMENT THERAPY
     Dosage: 0.25 MG, UNK
     Route: 062
  4. SINGULAIR [Concomitant]
     Active Substance: MONTELUKAST SODIUM
     Indication: VERTIGO
     Dosage: 10 MG, UNK
     Route: 065
  5. LEXAPRO [Concomitant]
     Active Substance: ESCITALOPRAM OXALATE
     Indication: DEPRESSION
     Dosage: 20 MG, UNK
     Route: 065
  6. PROMETRIUM [Concomitant]
     Active Substance: PROGESTERONE
     Indication: HORMONE REPLACEMENT THERAPY
     Dosage: 100 MG, UNK
     Route: 065

REACTIONS (2)
  - Wrong technique in product usage process [Unknown]
  - Insomnia [Not Recovered/Not Resolved]
